FAERS Safety Report 14433796 (Version 3)
Quarter: 2018Q2

REPORT INFORMATION
  Report Type: Report from Study
  Country: US (occurrence: US)
  Receive Date: 20180124
  Receipt Date: 20180620
  Transmission Date: 20180711
  Serious: Yes (Hospitalization)
  Sender: FDA-Public Use
  Company Number: US-ACTELION-A-NJ2018-166164

PATIENT
  Age: 45 Year
  Sex: Female

DRUGS (6)
  1. PRAVACHOL [Concomitant]
     Active Substance: PRAVASTATIN SODIUM
  2. OPSUMIT [Suspect]
     Active Substance: MACITENTAN
     Indication: PULMONARY ARTERIAL HYPERTENSION
     Dosage: 10 MG, QD
     Route: 048
     Dates: start: 20170822
  3. HYDROCORTISONE. [Concomitant]
     Active Substance: HYDROCORTISONE
  4. ASPIRIN 81 [Concomitant]
     Active Substance: ASPIRIN
  5. ISOCAL [Concomitant]
  6. CLARINEX [Concomitant]
     Active Substance: DESLORATADINE

REACTIONS (4)
  - Medical device site abscess [Not Recovered/Not Resolved]
  - Drug dose omission [Unknown]
  - Dialysis [Unknown]
  - Heart rate increased [Unknown]

NARRATIVE: CASE EVENT DATE: 2018
